FAERS Safety Report 17239825 (Version 1)
Quarter: 2020Q1

REPORT INFORMATION
  Report Type: Spontaneous
  Country: IE (occurrence: IE)
  Receive Date: 20200106
  Receipt Date: 20200106
  Transmission Date: 20200409
  Serious: Yes (Other)
  Sender: FDA-Public Use
  Company Number: IE-TEVA-2019-IE-1162276

PATIENT
  Sex: Male

DRUGS (4)
  1. ARIPIPRAZOLE. [Concomitant]
     Active Substance: ARIPIPRAZOLE
     Dosage: 6 MILLIGRAM DAILY;  EVERY MORNING
  2. PROMETHAZINE [Concomitant]
     Active Substance: PROMETHAZINE HYDROCHLORIDE
     Dosage: 5 ML DAILY; EVERY NIGHT
  3. SODIUM VALPROATE [Concomitant]
     Active Substance: VALPROATE SODIUM
     Dosage: 800 MILLIGRAM DAILY;  EVERY NIGHT
  4. RISPERIDONE. [Suspect]
     Active Substance: RISPERIDONE
     Indication: PSYCHOTIC DISORDER
     Dosage: 3.75 MILLIGRAM DAILY;
     Dates: start: 2018

REACTIONS (4)
  - Hallucination, visual [Unknown]
  - Drug ineffective [Unknown]
  - Hallucination, auditory [Unknown]
  - Wrong technique in product usage process [Unknown]
